FAERS Safety Report 22103315 (Version 2)
Quarter: 2023Q4

REPORT INFORMATION
  Report Type: Spontaneous
  Country: CA (occurrence: CA)
  Receive Date: 20230316
  Receipt Date: 20231110
  Transmission Date: 20240110
  Serious: Yes (Death)
  Sender: FDA-Public Use
  Company Number: CA-JNJFOC-20230327313

PATIENT
  Age: 59 Year
  Sex: Male

DRUGS (2)
  1. TYLENOL [Suspect]
     Active Substance: ACETAMINOPHEN
     Indication: Product used for unknown indication
     Route: 065
     Dates: start: 2022
  2. SOLU-CORTEF [Concomitant]
     Active Substance: HYDROCORTISONE SODIUM SUCCINATE
     Indication: Product used for unknown indication
     Dosage: DOSAGE FORM: POWDER FORSOLUTION INTRAMUSCULAR
     Route: 030
     Dates: start: 2022

REACTIONS (38)
  - Acute kidney injury [Fatal]
  - Acute pulmonary oedema [Fatal]
  - Blood pressure increased [Fatal]
  - Body temperature increased [Fatal]
  - Cardiac failure [Fatal]
  - Cerebral haemorrhage [Fatal]
  - Cerebral ischaemia [Fatal]
  - Chills [Fatal]
  - Confusional state [Fatal]
  - Cough [Fatal]
  - Crepitations [Fatal]
  - Dyspnoea [Fatal]
  - Dyspnoea exertional [Fatal]
  - Haemoptysis [Fatal]
  - Hallucination [Fatal]
  - Heart rate increased [Fatal]
  - Hyperfibrinolysis [Fatal]
  - Hypertension [Fatal]
  - Hypervolaemia [Fatal]
  - Hypoxia [Fatal]
  - Lung infiltration [Fatal]
  - Multiple organ dysfunction syndrome [Fatal]
  - Oxygen saturation decreased [Fatal]
  - Oxygen therapy [Fatal]
  - Periportal oedema [Fatal]
  - Pulmonary oedema [Fatal]
  - Pyrexia [Fatal]
  - Rales [Fatal]
  - Respiratory distress [Fatal]
  - Respiratory failure [Fatal]
  - Respiratory rate increased [Fatal]
  - Rhonchi [Fatal]
  - Sepsis [Fatal]
  - Tachypnoea [Fatal]
  - Transfusion reaction [Fatal]
  - Use of accessory respiratory muscles [Fatal]
  - Vomiting [Fatal]
  - Wheezing [Fatal]

NARRATIVE: CASE EVENT DATE: 20220101
